FAERS Safety Report 19430630 (Version 1)
Quarter: 2021Q2

REPORT INFORMATION
  Report Type: Spontaneous
  Country: CA (occurrence: CA)
  Receive Date: 20210617
  Receipt Date: 20210617
  Transmission Date: 20210717
  Serious: Yes (Death)
  Sender: FDA-Public Use
  Company Number: CA-IGSA-BIG0014842

PATIENT
  Age: 72 Year
  Sex: Male
  Weight: 82 kg

DRUGS (29)
  1. CALCITRIOL. [Concomitant]
     Active Substance: CALCITRIOL
  2. CITALOPRAM [Concomitant]
     Active Substance: CITALOPRAM HYDROBROMIDE
  3. DENOSUMAB [Concomitant]
     Active Substance: DENOSUMAB
  4. HYDROCORTISONE. [Concomitant]
     Active Substance: HYDROCORTISONE
  5. LOPERAMIDE [Concomitant]
     Active Substance: LOPERAMIDE
  6. SODIUM BICARBONATE. [Concomitant]
     Active Substance: SODIUM BICARBONATE
  7. EPOETIN [Concomitant]
     Active Substance: ERYTHROPOIETIN
  8. CITRACAL + D [CALCIUM CITRATE;COLECALCIFEROL] [Concomitant]
     Active Substance: CALCIUM CITRATE\CHOLECALCIFEROL
  9. DIPHENHYDRAMINE. [Concomitant]
     Active Substance: DIPHENHYDRAMINE
  10. POTASSIUM [Concomitant]
     Active Substance: POTASSIUM
  11. SIROLIMUS. [Concomitant]
     Active Substance: SIROLIMUS
  12. HYDROMORPHONE [Concomitant]
     Active Substance: HYDROMORPHONE
  13. DIPHENOXYLATE/ATROPINE [Concomitant]
     Active Substance: ATROPINE\DIPHENOXYLATE
  14. PHOSPHORUS [Concomitant]
     Active Substance: PHOSPHORUS
  15. PLATELETS [Concomitant]
     Active Substance: HUMAN PLATELET, ALLOGENIC
  16. IGIVNEX [Suspect]
     Active Substance: HUMAN IMMUNOGLOBULIN G
     Indication: IMMUNE THROMBOCYTOPENIA
     Dosage: 80 GRAM, SINGLE
     Route: 042
     Dates: start: 20210528
  17. MAGNESIUM [Concomitant]
     Active Substance: MAGNESIUM
  18. OMEPRAZOLE. [Concomitant]
     Active Substance: OMEPRAZOLE
  19. METAMUCIL THERAPY FOR REGULARITY [Concomitant]
     Active Substance: PSYLLIUM HUSK
  20. METOPROLOL. [Concomitant]
     Active Substance: METOPROLOL
  21. ACETAMINOPHEN. [Concomitant]
     Active Substance: ACETAMINOPHEN
  22. ALLOPURINOL. [Concomitant]
     Active Substance: ALLOPURINOL
  23. CALCIUM [Concomitant]
     Active Substance: CALCIUM
  24. FOLIC ACID. [Concomitant]
     Active Substance: FOLIC ACID
  25. PREDNISONE. [Concomitant]
     Active Substance: PREDNISONE
  26. EZETIMIBE. [Concomitant]
     Active Substance: EZETIMIBE
  27. MULTIVITAMINS [VITAMINS NOS] [Concomitant]
     Active Substance: VITAMINS
  28. NYSTATIN. [Concomitant]
     Active Substance: NYSTATIN
  29. LIDOCAINE. [Concomitant]
     Active Substance: LIDOCAINE
     Route: 048

REACTIONS (2)
  - Dyspnoea [Fatal]
  - Anxiety [Fatal]

NARRATIVE: CASE EVENT DATE: 20210528
